FAERS Safety Report 26099426 (Version 1)
Quarter: 2025Q4

REPORT INFORMATION
  Report Type: Spontaneous
  Country: AR (occurrence: AR)
  Receive Date: 20251128
  Receipt Date: 20251128
  Transmission Date: 20260117
  Serious: Yes (Other)
  Sender: ALEXION PHARMACEUTICALS
  Company Number: AR-ASTRAZENECA-202509GLO028876AR

PATIENT
  Age: 8 Decade

DRUGS (1)
  1. DURVALUMAB [Suspect]
     Active Substance: DURVALUMAB
     Indication: Hepatocellular carcinoma
     Dosage: DOSES AT AE- 8
     Route: 065

REACTIONS (1)
  - Lipodystrophy acquired [Unknown]
